FAERS Safety Report 7759225-X (Version None)
Quarter: 2011Q3

REPORT INFORMATION
  Report Type: 
  Country: None (occurrence: None)
  Receive Date: 20110825
  Receipt Date: 20110426
  Transmission Date: 20111222
  Serious: No
  Sender: FDA-Public Use
  Company Number: 326258

PATIENT
  Age: 76 Year
  Sex: Female

DRUGS (3)
  1. BYETTA [Concomitant]
  2. VICTOZA [Suspect]
     Indication: TYPE 2 DIABETES MELLITUS
     Dosage: 1.2 MG, QD, SUBCUTANEOUS
     Route: 058
     Dates: start: 20110405, end: 20110406
  3. VICTOZA [Suspect]
     Indication: TYPE 2 DIABETES MELLITUS
     Dosage: 1.2 MG, QD, SUBCUTANEOUS
     Route: 058
     Dates: end: 20110101

REACTIONS (4)
  - ERUCTATION [None]
  - EXPIRED DRUG ADMINISTERED [None]
  - NAUSEA [None]
  - VOMITING [None]
